FAERS Safety Report 4379437-5 (Version None)
Quarter: 2004Q2

REPORT INFORMATION
  Report Type: 
  Country: None (occurrence: None)
  Receive Date: 20040601
  Receipt Date: 20040419
  Transmission Date: 20050107
  Serious: No
  Sender: FDA-Public Use
  Company Number: WAES 0404USA01757

PATIENT
  Age: 69 Year
  Sex: Male

DRUGS (6)
  1. ZETIA [Suspect]
     Indication: DYSLIPIDAEMIA
     Dosage: 10MG/DAILY/PO
     Route: 048
  2. AMBIEN [Concomitant]
  3. ASPIRIN [Concomitant]
  4. GLIPIZIDE [Concomitant]
  5. METOPROLOL TARTRATE [Concomitant]
  6. GLUCOPHAGE [Concomitant]

REACTIONS (1)
  - MYOPATHY [None]
